FAERS Safety Report 7892954-6 (Version None)
Quarter: 2011Q4

REPORT INFORMATION
  Report Type: 
  Country: None (occurrence: None)
  Receive Date: 20111104
  Receipt Date: 20110912
  Transmission Date: 20120403
  Serious: No
  Sender: FDA-Public Use
  Company Number: US-MYLANLABS-2011S1019102

PATIENT
  Age: 55 Year
  Sex: Female

DRUGS (3)
  1. TRAZODONE HYDROCHLORIDE [Concomitant]
     Indication: INSOMNIA
  2. PAROXETINE HCL [Suspect]
     Indication: DEPRESSION
     Route: 048
     Dates: start: 20110820
  3. THYROID HORMONES [Concomitant]
     Indication: HYPOTHYROIDISM

REACTIONS (13)
  - MUSCLE SPASMS [None]
  - DYSPNOEA [None]
  - DIZZINESS [None]
  - CHEST PAIN [None]
  - HEADACHE [None]
  - CONSTIPATION [None]
  - NERVOUSNESS [None]
  - DRUG EFFECT DECREASED [None]
  - NIGHT SWEATS [None]
  - INCREASED APPETITE [None]
  - DEPRESSION [None]
  - MOOD SWINGS [None]
  - INSOMNIA [None]
